FAERS Safety Report 15353621 (Version 1)
Quarter: 2018Q3

REPORT INFORMATION
  Report Type: Spontaneous
  Country: JP (occurrence: JP)
  Receive Date: 20180905
  Receipt Date: 20180905
  Transmission Date: 20181010
  Serious: Yes (Hospitalization)
  Sender: FDA-Public Use
  Company Number: JP-ANIPHARMA-2018-JP-000150

PATIENT
  Age: 50 Year
  Sex: Male

DRUGS (2)
  1. FORXIGA [Suspect]
     Active Substance: DAPAGLIFLOZIN
     Dosage: 5 MG DAILY
     Route: 048
     Dates: start: 20160802, end: 20180802
  2. CANDESARTAN CILEXETIL. [Suspect]
     Active Substance: CANDESARTAN CILEXETIL
     Dosage: 12 MG DAILY
     Route: 048
     Dates: start: 20090801, end: 20180802

REACTIONS (5)
  - Dizziness postural [Unknown]
  - Renal impairment [Recovered/Resolved]
  - Hyperhidrosis [Unknown]
  - Dehydration [Recovered/Resolved]
  - Headache [Unknown]

NARRATIVE: CASE EVENT DATE: 20180802
